FAERS Safety Report 18358564 (Version 2)
Quarter: 2020Q4

REPORT INFORMATION
  Report Type: Report from Study
  Country: US (occurrence: US)
  Receive Date: 20201008
  Receipt Date: 20201206
  Transmission Date: 20210114
  Serious: Yes (Hospitalization, Other)
  Sender: FDA-Public Use
  Company Number: US-EMD SERONO-9190106

PATIENT
  Sex: Male
  Weight: 88 kg

DRUGS (1)
  1. REBIF [Suspect]
     Active Substance: INTERFERON BETA-1A
     Indication: MULTIPLE SCLEROSIS
     Route: 058
     Dates: start: 20191007

REACTIONS (3)
  - Alcohol poisoning [Unknown]
  - Pituitary tumour [Unknown]
  - Multiple sclerosis relapse [Unknown]
